FAERS Safety Report 18608975 (Version 1)
Quarter: 2020Q4

REPORT INFORMATION
  Report Type: Spontaneous
  Country: US (occurrence: US)
  Receive Date: 20201214
  Receipt Date: 20201214
  Transmission Date: 20210114
  Serious: No
  Sender: FDA-Public Use
  Company Number: US-ENCUBE-000022

PATIENT
  Sex: Female

DRUGS (2)
  1. DICLOFENAC SODIUM 1% TOPICAL GEL [Suspect]
     Active Substance: DICLOFENAC SODIUM
     Indication: COCCYDYNIA
     Route: 061
     Dates: start: 20201118
  2. DICLOFENAC SODIUM 1% TOPICAL GEL [Suspect]
     Active Substance: DICLOFENAC SODIUM
     Indication: SPINAL PAIN
     Route: 061
     Dates: start: 20201118

REACTIONS (1)
  - Blood glucose increased [Unknown]

NARRATIVE: CASE EVENT DATE: 202011
